FAERS Safety Report 4641541-1 (Version None)
Quarter: 2005Q2

REPORT INFORMATION
  Report Type: 
  Country: None (occurrence: None)
  Receive Date: 20050421
  Receipt Date: 20050411
  Transmission Date: 20051028
  Serious: Yes (Death, Other)
  Sender: FDA-Public Use
  Company Number: US-BRISTOL-MYERS SQUIBB COMPANY-12929170

PATIENT

DRUGS (2)
  1. WARFARIN SODIUM [Suspect]
     Indication: ARTERIAL STENOSIS
  2. ASPIRIN [Suspect]
     Indication: ARTERIAL STENOSIS

REACTIONS (13)
  - CARDIAC FAILURE CONGESTIVE [None]
  - CEREBRAL HAEMORRHAGE [None]
  - DIABETES MELLITUS [None]
  - EYE HAEMORRHAGE [None]
  - GASTROINTESTINAL HAEMORRHAGE [None]
  - ISCHAEMIC STROKE [None]
  - MYOCARDIAL INFARCTION [None]
  - NEOPLASM MALIGNANT [None]
  - RESPIRATORY FAILURE [None]
  - SEPSIS [None]
  - SUBDURAL HAEMATOMA [None]
  - SUDDEN DEATH [None]
  - UROGENITAL HAEMORRHAGE [None]
